FAERS Safety Report 6260441-7 (Version None)
Quarter: 2009Q3

REPORT INFORMATION
  Report Type: 
  Country: None (occurrence: None)
  Receive Date: 20090708
  Receipt Date: 20090707
  Transmission Date: 20100115
  Serious: Yes (Hospitalization)
  Sender: FDA-Public Use
  Company Number: FR-PFIZER INC-2009191013

PATIENT
  Age: 33 Year

DRUGS (1)
  1. XALATAN [Suspect]
     Dosage: UNK
     Dates: start: 20090201, end: 20090101

REACTIONS (1)
  - PRESYNCOPE [None]
